FAERS Safety Report 7273590-1 (Version None)
Quarter: 2011Q1

REPORT INFORMATION
  Report Type: 
  Country: None (occurrence: None)
  Receive Date: 20110203
  Receipt Date: 20100923
  Transmission Date: 20110831
  Serious: No
  Sender: FDA-Public Use
  Company Number: US-ABBOTT-09P-163-0566300-00

PATIENT
  Sex: Female
  Weight: 49.94 kg

DRUGS (8)
  1. BONIVA [Concomitant]
     Indication: OSTEOPOROSIS
     Route: 048
  2. SYNTHROID [Suspect]
     Route: 048
     Dates: start: 20070101, end: 20070101
  3. ZYRTEC [Concomitant]
     Indication: HYPERSENSITIVITY
  4. SYNTHROID [Suspect]
     Dates: start: 20070101
  5. ASPIRIN [Concomitant]
     Indication: INFLAMMATION
  6. SYNTHROID [Suspect]
     Route: 048
     Dates: start: 20070101, end: 20070101
  7. NEURONTIN [Concomitant]
     Indication: PAIN
  8. SYNTHROID [Suspect]
     Indication: HYPOTHYROIDISM
     Route: 048
     Dates: start: 19860101

REACTIONS (9)
  - ANXIETY [None]
  - WEIGHT INCREASED [None]
  - CONFUSIONAL STATE [None]
  - BLOOD THYROID STIMULATING HORMONE DECREASED [None]
  - HAIR TEXTURE ABNORMAL [None]
  - FEELING COLD [None]
  - WRONG TECHNIQUE IN DRUG USAGE PROCESS [None]
  - LETHARGY [None]
  - EXPIRED DRUG ADMINISTERED [None]
